FAERS Safety Report 20589182 (Version 1)
Quarter: 2022Q1

REPORT INFORMATION
  Report Type: Spontaneous
  Country: CH (occurrence: CH)
  Receive Date: 20220314
  Receipt Date: 20220314
  Transmission Date: 20220423
  Serious: Yes (Other)
  Sender: FDA-Public Use
  Company Number: CH-ORGANON-O2203CHE000745

PATIENT
  Age: 23 Year
  Sex: Male

DRUGS (2)
  1. DIPROPHOS [Suspect]
     Active Substance: BETAMETHASONE DIPROPIONATE\BETAMETHASONE SODIUM PHOSPHATE
     Indication: Seasonal allergy
     Dosage: 1 DOSAGE FORM, ONCE A YEAR
     Route: 030
     Dates: start: 2007
  2. DIPROPHOS [Suspect]
     Active Substance: BETAMETHASONE DIPROPIONATE\BETAMETHASONE SODIUM PHOSPHATE
     Dosage: 1 DOSAGE FORM, ONCE A YEAR
     Route: 030
     Dates: start: 20210609

REACTIONS (2)
  - Anaphylactic reaction [Recovering/Resolving]
  - Pseudoallergic reaction [Recovering/Resolving]

NARRATIVE: CASE EVENT DATE: 20210609
